FAERS Safety Report 14282935 (Version 2)
Quarter: 2018Q1

REPORT INFORMATION
  Report Type: Spontaneous
  Country: US (occurrence: US)
  Receive Date: 20171213
  Receipt Date: 20180102
  Transmission Date: 20180508
  Serious: Yes (Hospitalization)
  Sender: FDA-Public Use
  Company Number: US-VIFOR (INTERNATIONAL) INC.-VIT-2017-13170

PATIENT
  Sex: Male

DRUGS (15)
  1. NOVOLOG [Concomitant]
     Active Substance: INSULIN ASPART
  2. GLIMEPIRIDE. [Concomitant]
     Active Substance: GLIMEPIRIDE
  3. LISINOPRIL. [Concomitant]
     Active Substance: LISINOPRIL
  4. VELTASSA [Suspect]
     Active Substance: PATIROMER
     Indication: HYPERKALAEMIA
     Route: 048
     Dates: start: 20160608
  5. NIASPAN [Concomitant]
     Active Substance: NIACIN
  6. SLOW-MAG [Concomitant]
     Active Substance: MAGNESIUM CHLORIDE
  7. TRADJENTA [Concomitant]
     Active Substance: LINAGLIPTIN
  8. CARDURA [Concomitant]
     Active Substance: DOXAZOSIN MESYLATE
  9. GRALISE [Concomitant]
     Active Substance: GABAPENTIN
  10. LASIX [Concomitant]
     Active Substance: FUROSEMIDE
  11. COENZYME Q10 [Concomitant]
     Active Substance: UBIDECARENONE
  12. LOVAZA [Concomitant]
     Active Substance: OMEGA-3-ACID ETHYL ESTERS
  13. CARTIA XT [Concomitant]
     Active Substance: DILTIAZEM HYDROCHLORIDE
  14. ERGOCALCIFEROL. [Concomitant]
     Active Substance: ERGOCALCIFEROL
  15. KIONEX [Concomitant]
     Active Substance: SODIUM POLYSTYRENE SULFONATE

REACTIONS (1)
  - Herpes zoster [Not Recovered/Not Resolved]
